FAERS Safety Report 12069784 (Version 1)
Quarter: 2016Q1

REPORT INFORMATION
  Report Type: Spontaneous
  Country: CH (occurrence: CH)
  Receive Date: 20160211
  Receipt Date: 20160211
  Transmission Date: 20160526
  Serious: Yes (Hospitalization)
  Sender: FDA-Public Use
  Company Number: CH-TEVA-633101ISR

PATIENT
  Age: 77 Year
  Sex: Female
  Weight: 101 kg

DRUGS (7)
  1. PANTOZOL [Concomitant]
     Active Substance: PANTOPRAZOLE SODIUM
     Dosage: 80 MILLIGRAM DAILY; ENTERIC, STRENGTH 40MG
     Route: 048
  2. ZOLPIDEM STREULI [Concomitant]
     Active Substance: ZOLPIDEM TARTRATE
     Dosage: 10 MILLIGRAM DAILY; STRENGTH 10MG
     Route: 048
  3. NEBILET [Concomitant]
     Active Substance: NEBIVOLOL
     Dosage: 5 MILLIGRAM DAILY; UNSPECIFIED STRENGTH
     Route: 048
  4. TORASEMIDE SANDOZ ECO [Concomitant]
     Dosage: 20 MILLIGRAM DAILY; STRENGTH 20MG
     Route: 048
  5. SERALIN-MEPHA [Suspect]
     Active Substance: SERTRALINE HYDROCHLORIDE
     Dosage: 75 MILLIGRAM DAILY; STRENGTH 50MG, START DATE OF THERAPY IS NOT KNOWN
     Route: 048
  6. MARCOUMAR [Suspect]
     Active Substance: PHENPROCOUMON
     Dosage: STRENGTH 3MG, DOSAGE ACCORDING TO SCHEME
     Route: 048
     Dates: start: 201310, end: 201501
  7. XENALON [Concomitant]
     Dosage: 50 MILLIGRAM DAILY; STRENGTH 50MG
     Route: 048

REACTIONS (2)
  - Hypovolaemic shock [Recovered/Resolved]
  - Spontaneous haematoma [Recovering/Resolving]

NARRATIVE: CASE EVENT DATE: 20150117
